FAERS Safety Report 9758538 (Version 1)
Quarter: 2013Q4

REPORT INFORMATION
  Report Type: Spontaneous
  Country: US (occurrence: None)
  Receive Date: 20131216
  Receipt Date: 20131216
  Transmission Date: 20140711
  Serious: Yes (Other)
  Sender: FDA-Public Use
  Company Number: CABO-13002409

PATIENT
  Age: 71 Year
  Sex: Male

DRUGS (1)
  1. COMETRIQ (CABOZANTINIB) CAPSULE [Suspect]
     Dosage: 140 MG, QD, ORAL?100 MG, QD. ORAL

REACTIONS (3)
  - Rectal haemorrhage [None]
  - Haemoglobin decreased [None]
  - Diarrhoea [None]
